FAERS Safety Report 19401203 (Version 1)
Quarter: 2021Q2

REPORT INFORMATION
  Report Type: Spontaneous
  Country: CN (occurrence: CN)
  Receive Date: 20210611
  Receipt Date: 20210611
  Transmission Date: 20210717
  Serious: Yes (Hospitalization)
  Sender: FDA-Public Use
  Company Number: CN-ROCHE-2844398

PATIENT
  Age: 70 Year
  Sex: Female
  Weight: 53 kg

DRUGS (5)
  1. BEVACIZUMAB. [Suspect]
     Active Substance: BEVACIZUMAB
     Indication: NEOPLASM MALIGNANT
     Route: 041
     Dates: start: 20210518
  2. TROPISETRON [Concomitant]
     Active Substance: TROPISETRON
  3. LOBAPLATIN [Suspect]
     Active Substance: LOBAPLATIN
     Indication: NEOPLASM MALIGNANT
     Route: 041
     Dates: start: 20210518
  4. DEXAMETHASONE. [Concomitant]
     Active Substance: DEXAMETHASONE
  5. ETOPOSIDE. [Suspect]
     Active Substance: ETOPOSIDE
     Indication: NEOPLASM MALIGNANT
     Route: 041
     Dates: start: 20210518

REACTIONS (3)
  - Off label use [Unknown]
  - Myelosuppression [Recovering/Resolving]
  - Pyrexia [Unknown]

NARRATIVE: CASE EVENT DATE: 20210531
